FAERS Safety Report 11703956 (Version 1)
Quarter: 2015Q4

REPORT INFORMATION
  Report Type: Spontaneous
  Country: US (occurrence: None)
  Receive Date: 20151105
  Receipt Date: 20151105
  Transmission Date: 20160304
  Serious: No
  Sender: FDA-Public Use
  Company Number: None

PATIENT
  Age: 47 Year
  Sex: Female
  Weight: 99.79 kg

DRUGS (3)
  1. SUMATRIPTAN. [Suspect]
     Active Substance: SUMATRIPTAN
     Indication: MIGRAINE
     Dosage: 1 PILL
     Route: 048
  2. VAGI-FEM [Concomitant]
  3. SUMATRIPTAN. [Suspect]
     Active Substance: SUMATRIPTAN
     Indication: DIZZINESS
     Dosage: 1 PILL
     Route: 048

REACTIONS (3)
  - Chest discomfort [None]
  - Pain in jaw [None]
  - Jaw fracture [None]

NARRATIVE: CASE EVENT DATE: 20151103
